FAERS Safety Report 4725634-6 (Version None)
Quarter: 2005Q3

REPORT INFORMATION
  Report Type: 
  Country: None (occurrence: None)
  Receive Date: 20050727
  Receipt Date: 20050412
  Transmission Date: 20060218
  Serious: Yes (Hospitalization, Other)
  Sender: FDA-Public Use
  Company Number: US-MERCK-0504USA02074

PATIENT
  Age: 71 Year
  Sex: Female
  Weight: 53 kg

DRUGS (23)
  1. VIOXX [Suspect]
     Indication: ARTHRITIS
     Route: 048
     Dates: start: 19990101, end: 20040830
  2. ACIPHEX [Concomitant]
     Indication: GASTRIC DISORDER
     Route: 065
  3. LIPITOR [Concomitant]
     Indication: BLOOD CHOLESTEROL INCREASED
     Route: 065
  4. NORVASC [Concomitant]
     Indication: HYPERTENSION
     Route: 065
  5. AMOXICILLIN [Concomitant]
     Route: 048
  6. CODEINE PHOSPHATE AND PROMETHAZINE HYDROCHLORIDE [Concomitant]
     Route: 065
  7. TUSSIONEX (CHLORPHENIRAMINE POLISTIREX (+) HYDROCODONE POLISTIREX) [Concomitant]
     Route: 065
  8. QUININE SULFATE [Concomitant]
     Indication: MUSCLE SPASMS
     Route: 048
  9. PREMARIN [Concomitant]
     Indication: HORMONE REPLACEMENT THERAPY
     Route: 065
  10. FLUOCINONIDE [Concomitant]
     Route: 065
  11. CODEINE [Concomitant]
     Indication: PAIN
     Route: 065
  12. PROTOPIC [Concomitant]
     Indication: COUGH
     Route: 065
  13. CELEXA [Concomitant]
     Route: 065
  14. WELLBUTRIN [Concomitant]
     Indication: NERVOUSNESS
     Route: 048
  15. PLAVIX [Concomitant]
     Indication: ANTICOAGULANT THERAPY
     Route: 065
  16. HYDROCODONE BITARTRATE [Concomitant]
     Indication: PAIN
     Route: 065
  17. ALBUTEROL [Concomitant]
     Indication: NASOPHARYNGITIS
     Route: 055
  18. ZITHROMAX [Concomitant]
     Indication: NASOPHARYNGITIS
     Route: 065
  19. PENTOXIFYLLINE [Concomitant]
     Route: 065
  20. CILOXAN [Concomitant]
     Route: 065
  21. PREDNISONE [Concomitant]
     Indication: ASTHMA
     Route: 065
  22. ALPRAZOLAM [Concomitant]
     Route: 065
  23. LAMISIL [Concomitant]
     Route: 065

REACTIONS (10)
  - BLOOD CHOLESTEROL INCREASED [None]
  - CARDIAC MURMUR [None]
  - CAROTID ARTERY STENOSIS [None]
  - CEREBROVASCULAR ACCIDENT [None]
  - DYSPNOEA [None]
  - GASTRIC DISORDER [None]
  - HYPERTENSION [None]
  - MYOCARDIAL INFARCTION [None]
  - THROMBOSIS [None]
  - TRANSIENT ISCHAEMIC ATTACK [None]
